FAERS Safety Report 21527931 (Version 2)
Quarter: 2022Q4

REPORT INFORMATION
  Report Type: Spontaneous
  Country: US (occurrence: US)
  Receive Date: 20221031
  Receipt Date: 20221101
  Transmission Date: 20230113
  Serious: Yes (Other)
  Sender: FDA-Public Use
  Company Number: US-MLMSERVICE-20221011-3842225-1

PATIENT
  Age: 68 Year
  Sex: Male

DRUGS (6)
  1. ROPIVACAINE HYDROCHLORIDE [Suspect]
     Active Substance: ROPIVACAINE HYDROCHLORIDE
     Indication: Local anaesthesia
     Dosage: 0.5% ROPIVACAINE WITHOUT EPINEPHRINE AND ADDED 6MG OF DEXAMETHASONE FOR A TOTAL VOLUME OF 15ML
  2. IBUPROFEN [Concomitant]
     Active Substance: IBUPROFEN
     Indication: Radicular pain
     Dosage: 600 MG
  3. IBUPROFEN [Concomitant]
     Active Substance: IBUPROFEN
     Indication: Back pain
  4. DEXAMETHASONE [Concomitant]
     Active Substance: DEXAMETHASONE
     Indication: Nerve block
     Dosage: 0.5% ROPIVACAINE WITHOUT EPINEPHRINE AND ADDED 6MG OF DEXAMETHASONE FOR A TOTAL VOLUME OF 15ML
  5. ACETAMINOPHEN [Concomitant]
     Active Substance: ACETAMINOPHEN
     Indication: Back pain
     Dosage: 975 MG
  6. ACETAMINOPHEN [Concomitant]
     Active Substance: ACETAMINOPHEN
     Indication: Radicular pain

REACTIONS (5)
  - Nerve injury [Recovered/Resolved]
  - Paralysis [Recovered/Resolved]
  - Muscular weakness [Recovered/Resolved]
  - Joint injury [Recovered/Resolved]
  - Joint hyperextension [Recovered/Resolved]
